FAERS Safety Report 9536002 (Version 1)
Quarter: 2013Q3

REPORT INFORMATION
  Report Type: Spontaneous
  Country: US (occurrence: US)
  Receive Date: 20130919
  Receipt Date: 20130919
  Transmission Date: 20140515
  Serious: No
  Sender: FDA-Public Use
  Company Number: US-PFIZER INC-2013267519

PATIENT
  Age: 47 Year
  Sex: Female
  Weight: 34.47 kg

DRUGS (1)
  1. CHANTIX [Suspect]
     Indication: SMOKING CESSATION THERAPY
     Dosage: 1 MG, SINGLE
     Route: 048
     Dates: start: 20130916

REACTIONS (1)
  - Pruritus [Unknown]
